FAERS Safety Report 15188206 (Version 1)
Quarter: 2018Q3

REPORT INFORMATION
  Report Type: Spontaneous
  Country: US (occurrence: US)
  Receive Date: 20180724
  Receipt Date: 20180724
  Transmission Date: 20181010
  Serious: Yes (Life-Threatening, Other)
  Sender: FDA-Public Use
  Company Number: US-BAUSCH-BL-2018-019634

PATIENT
  Age: 65 Year
  Sex: Male

DRUGS (11)
  1. TRETINOIN. [Suspect]
     Active Substance: TRETINOIN
     Indication: ACUTE PROMYELOCYTIC LEUKAEMIA
     Dosage: THREE CYCLES OF CONSOLIDATION; 3 CYCLICAL
     Route: 065
  2. MITOXANTRONE [Suspect]
     Active Substance: MITOXANTRONE HYDROCHLORIDE
     Indication: ACUTE PROMYELOCYTIC LEUKAEMIA
     Dosage: THREE CYCLES OF CONSOLIDATION, 3 CYCLICAL
     Route: 065
  3. ARSENIC TRIOXIDE [Suspect]
     Active Substance: ARSENIC TRIOXIDE
     Indication: ACUTE PROMYELOCYTIC LEUKAEMIA
     Dosage: 0.15 MG/KG DAILY; CYCLICAL
     Route: 065
  4. METHOTREXATE. [Suspect]
     Active Substance: METHOTREXATE
     Indication: ACUTE PROMYELOCYTIC LEUKAEMIA
     Dosage: 12 MG, CYCLICAL
     Route: 037
  5. IDARUBICIN [Suspect]
     Active Substance: IDARUBICIN
     Indication: ACUTE PROMYELOCYTIC LEUKAEMIA
     Dosage: THREE CYCLES OF CONSOLIDATION, 3 CYCLICAL
     Route: 065
  6. CYTARABINE. [Suspect]
     Active Substance: CYTARABINE
     Indication: ACUTE PROMYELOCYTIC LEUKAEMIA
     Dosage: THREE CYCLES OF CONSOLIDATION, 3 CYCLICAL
     Route: 065
  7. IDARUBICIN [Suspect]
     Active Substance: IDARUBICIN
     Route: 065
  8. 6?MERCAPTOPURINE [Suspect]
     Active Substance: MERCAPTOPURINE
     Indication: ACUTE PROMYELOCYTIC LEUKAEMIA
     Dosage: MAINTENANCE THERAPY ? 50 MG DAILY, CYCLICAL
     Route: 065
  9. METHOTREXATE. [Suspect]
     Active Substance: METHOTREXATE
     Dosage: MAINTENANCE THERAPY ? 15 MG WEEKLY, CYCLICAL
     Route: 065
  10. TRETINOIN. [Suspect]
     Active Substance: TRETINOIN
     Dosage: 45 MG/M2 /DAY, CYCLICAL
     Route: 065
  11. TRETINOIN. [Suspect]
     Active Substance: TRETINOIN
     Indication: ACUTE PROMYELOCYTIC LEUKAEMIA
     Dosage: MAINTENANCE THERAPY ? 50 MG BID, CYCLICAL
     Route: 065

REACTIONS (4)
  - Cytogenetic abnormality [Unknown]
  - Haematopoietic neoplasm [Recovered/Resolved]
  - Paraesthesia [Unknown]
  - Subarachnoid haemorrhage [Recovered/Resolved]
